FAERS Safety Report 8809305 (Version 1)
Quarter: 2012Q4

REPORT INFORMATION
  Report Type: Spontaneous
  Country: US (occurrence: None)
  Receive Date: 20120924
  Receipt Date: 20120924
  Transmission Date: 20130627
  Serious: Yes (Disabling)
  Sender: FDA-Public Use
  Company Number: None

PATIENT
  Age: 75 Year
  Sex: Male
  Weight: 93.44 kg

DRUGS (1)
  1. CIALIS [Suspect]
     Indication: PROSTATECTOMY
     Route: 048
     Dates: start: 20100225, end: 20120921

REACTIONS (3)
  - Sudden hearing loss [None]
  - Autoimmune disorder [None]
  - Red blood cell sedimentation rate increased [None]
